FAERS Safety Report 11285213 (Version 1)
Quarter: 2015Q3

REPORT INFORMATION
  Report Type: Spontaneous
  Country: JP (occurrence: JP)
  Receive Date: 20150720
  Receipt Date: 20150720
  Transmission Date: 20151125
  Serious: Yes (Hospitalization)
  Sender: FDA-Public Use
  Company Number: PHJP2015JP010682

PATIENT
  Age: 73 Year
  Sex: Male

DRUGS (5)
  1. AMANTADINE [Suspect]
     Active Substance: AMANTADINE
     Indication: MIXED DEMENTIA
     Route: 065
  2. AMANTADINE [Suspect]
     Active Substance: AMANTADINE
     Dosage: 500 MG, QD
     Route: 065
  3. AMANTADINE [Suspect]
     Active Substance: AMANTADINE
     Dosage: 300 MG, QD
     Route: 065
  4. CILOSTAZOL. [Suspect]
     Active Substance: CILOSTAZOL
     Indication: MIXED DEMENTIA
     Route: 065
  5. DONEPEZIL. [Suspect]
     Active Substance: DONEPEZIL
     Indication: MIXED DEMENTIA
     Route: 065

REACTIONS (10)
  - Tremor [Unknown]
  - Pyrexia [Unknown]
  - Dementia [Unknown]
  - Vomiting [Unknown]
  - Dyskinesia [Recovered/Resolved]
  - Drug ineffective [Unknown]
  - Toxicity to various agents [Unknown]
  - Off label use [Unknown]
  - Altered state of consciousness [Unknown]
  - Acute respiratory distress syndrome [Recovering/Resolving]
